FAERS Safety Report 20286430 (Version 3)
Quarter: 2022Q3

REPORT INFORMATION
  Report Type: Report from Study
  Country: NL (occurrence: NL)
  Receive Date: 20220103
  Receipt Date: 20220705
  Transmission Date: 20221027
  Serious: Yes (Other)
  Sender: FDA-Public Use
  Company Number: NL-ABBVIE-21K-114-4127321-00

PATIENT
  Age: 71 Year
  Sex: Male

DRUGS (2)
  1. CARBIDOPA\LEVODOPA [Suspect]
     Active Substance: CARBIDOPA\LEVODOPA
     Indication: Parkinson^s disease
     Route: 050
     Dates: start: 20160630
  2. CARBIDOPA\LEVODOPA [Suspect]
     Active Substance: CARBIDOPA\LEVODOPA
     Dosage: MD: 7.0 ML, CD: 2.0 ML/H, ED: 2.5 ML
     Route: 050

REACTIONS (17)
  - Skin graft [Recovering/Resolving]
  - Middle insomnia [Not Recovered/Not Resolved]
  - Gait disturbance [Unknown]
  - Restlessness [Not Recovered/Not Resolved]
  - General physical condition abnormal [Unknown]
  - Taste disorder [Not Recovered/Not Resolved]
  - Muscle rigidity [Unknown]
  - Mobility decreased [Unknown]
  - Neck pain [Not Recovered/Not Resolved]
  - Tremor [Not Recovered/Not Resolved]
  - Decreased appetite [Not Recovered/Not Resolved]
  - Fatigue [Not Recovered/Not Resolved]
  - Constipation [Not Recovered/Not Resolved]
  - Dyskinesia [Unknown]
  - On and off phenomenon [Unknown]
  - Stoma site irritation [Not Recovered/Not Resolved]
  - Stoma site erythema [Not Recovered/Not Resolved]

NARRATIVE: CASE EVENT DATE: 20210101
